FAERS Safety Report 5089722-X (Version None)
Quarter: 2006Q3

REPORT INFORMATION
  Report Type: 
  Country: None (occurrence: None)
  Receive Date: 20060828
  Receipt Date: 20060822
  Transmission Date: 20061208
  Serious: Yes (Other)
  Sender: FDA-Public Use
  Company Number: PHNU2006DE02870

PATIENT
  Sex: Male

DRUGS (5)
  1. TEGRETOL [Suspect]
     Indication: CONVULSION PROPHYLAXIS
     Dosage: 800 MG/DAY
     Route: 048
     Dates: start: 20060515, end: 20060518
  2. KALETRA [Suspect]
     Indication: HIV INFECTION
     Dosage: 3 DF, BID
     Route: 048
  3. L-POLAMIDON [Concomitant]
     Indication: DRUG WITHDRAWAL MAINTENANCE THERAPY
     Dosage: 2 MG/DAY
     Route: 048
  4. DIAZEPAM [Concomitant]
     Indication: DRUG DEPENDENCE
     Dosage: 20 MG/DAY
     Route: 048
     Dates: start: 20060516, end: 20060518
  5. FLUNITRAZEPAM [Concomitant]
     Dosage: 4 MG/DAY

REACTIONS (8)
  - ANTICONVULSANT DRUG LEVEL INCREASED [None]
  - ASTHENIA [None]
  - COORDINATION ABNORMAL [None]
  - DIZZINESS [None]
  - DRUG INTERACTION [None]
  - DRUG TOXICITY [None]
  - GENERAL PHYSICAL HEALTH DETERIORATION [None]
  - NYSTAGMUS [None]
